FAERS Safety Report 8712073 (Version 2)
Quarter: 2013Q4

REPORT INFORMATION
  Report Type: Spontaneous
  Country: US (occurrence: US)
  Receive Date: 20120807
  Receipt Date: 20131101
  Transmission Date: 20140711
  Serious: No
  Sender: FDA-Public Use
  Company Number: US-009507513-1203USA04646

PATIENT
  Sex: Female

DRUGS (2)
  1. FOSAMAX [Suspect]
     Route: 048
     Dates: end: 201106
  2. LYRICA [Concomitant]
     Dosage: UNK MG, UNK
     Route: 048

REACTIONS (29)
  - Blood pressure increased [Unknown]
  - Ear pain [Unknown]
  - Myofascial pain syndrome [Unknown]
  - Pain in extremity [Unknown]
  - Astigmatism [Unknown]
  - Scoliosis [Unknown]
  - Burning sensation [Unknown]
  - Muscle mass [Unknown]
  - Neuralgia [Unknown]
  - Foot fracture [Unknown]
  - Intervertebral disc protrusion [Unknown]
  - Spondylolisthesis [Unknown]
  - Intervertebral disc protrusion [Unknown]
  - Intervertebral disc degeneration [Unknown]
  - Osteoporosis [Unknown]
  - Arthritis [Unknown]
  - Walking aid user [Unknown]
  - Vision blurred [Unknown]
  - Temporomandibular joint syndrome [Not Recovered/Not Resolved]
  - Lumbar vertebral fracture [Unknown]
  - Muscle spasms [Unknown]
  - Myalgia [Unknown]
  - Muscular weakness [Unknown]
  - Sensation of heaviness [Unknown]
  - Neuralgia [Recovering/Resolving]
  - Musculoskeletal pain [Unknown]
  - Neck pain [Unknown]
  - Headache [Unknown]
  - Tinnitus [Unknown]
